FAERS Safety Report 8251228-4 (Version None)
Quarter: 2012Q2

REPORT INFORMATION
  Report Type: 
  Country: None (occurrence: None)
  Receive Date: 20120402
  Receipt Date: 20120326
  Transmission Date: 20120825
  Serious: Yes (Other)
  Sender: FDA-Public Use
  Company Number: GR-JNJFOC-20120314009

PATIENT
  Age: 81 Year
  Sex: Female

DRUGS (1)
  1. STELARA [Suspect]
     Indication: PSORIASIS
     Dosage: 1ST DOSE
     Route: 058

REACTIONS (3)
  - PAIN IN EXTREMITY [None]
  - SENSORY LOSS [None]
  - HERPES ZOSTER [None]
